FAERS Safety Report 6399916-9 (Version None)
Quarter: 2009Q4

REPORT INFORMATION
  Report Type: 
  Country: None (occurrence: None)
  Receive Date: 20091014
  Receipt Date: 20091009
  Transmission Date: 20100525
  Serious: Yes (Other)
  Sender: FDA-Public Use
  Company Number: BR-B.I. PHARMACEUTICALS,INC./RIDGEFIELD-2009-BR-01034BR

PATIENT
  Sex: Female

DRUGS (1)
  1. MICARDIS HCT [Suspect]
     Indication: HYPERTENSION
     Dosage: 40MG TELMISARTAN /12,5MG HYDROCHLOROTHIAZIDE
     Route: 048
     Dates: start: 20091007

REACTIONS (1)
  - BLOOD PRESSURE FLUCTUATION [None]
